FAERS Safety Report 10281832 (Version 1)
Quarter: 2014Q3

REPORT INFORMATION
  Report Type: Report from Study
  Country: US (occurrence: US)
  Receive Date: 20140707
  Receipt Date: 20140707
  Transmission Date: 20150326
  Serious: Yes (Life-Threatening, Hospitalization, Other)
  Sender: FDA-Public Use
  Company Number: PHHY2014US081027

PATIENT
  Age: 76 Year
  Sex: Male

DRUGS (18)
  1. ALPRAZOLAM. [Concomitant]
     Active Substance: ALPRAZOLAM
     Dosage: UNK UKN, UNK
  2. AMLODIPINE [Concomitant]
     Active Substance: AMLODIPINE BESYLATE
     Dosage: UNK UKN, UNK
     Dates: start: 20131213
  3. ACYCLOVIR. [Concomitant]
     Active Substance: ACYCLOVIR
     Dosage: UNK UKN, UNK
     Dates: start: 20131212
  4. NYSTATIN. [Concomitant]
     Active Substance: NYSTATIN
     Dosage: UNK UKN, UNK
     Dates: start: 20131212
  5. RANITIDINE [Concomitant]
     Active Substance: RANITIDINE\RANITIDINE HYDROCHLORIDE
     Dosage: UNK UKN, UNK
     Dates: start: 20140407, end: 20140501
  6. TAMSULOSIN [Concomitant]
     Active Substance: TAMSULOSIN
     Dosage: UNK UKN, UNK
  7. PROGRAF [Concomitant]
     Active Substance: TACROLIMUS\TACROLIMUS ANHYDROUS
     Dosage: UNK UKN, UNK
     Dates: start: 20140227
  8. CHOLECALCIFEROL [Concomitant]
     Active Substance: CHOLECALCIFEROL
     Dosage: UNK UKN, UNK
     Dates: start: 20140226
  9. MULTIPLE VITAMINS [Concomitant]
     Active Substance: VITAMINS
     Dosage: UNK UKN, UNK
     Dates: start: 20131212
  10. BACTRIM [Concomitant]
     Active Substance: SULFAMETHOXAZOLE\TRIMETHOPRIM
     Dosage: UNK UKN, UNK
     Dates: start: 20131212
  11. RITUXIMAB [Concomitant]
     Active Substance: RITUXIMAB
     Dosage: 800 MG, UNK
     Dates: start: 20140513
  12. MYFORTIC [Suspect]
     Active Substance: MYCOPHENOLATE SODIUM
     Dosage: 1440 MG PER DAY
     Route: 048
     Dates: start: 20131212, end: 20140328
  13. NULOJIX [Suspect]
     Active Substance: BELATACEPT
     Indication: RENAL TRANSPLANT
     Dosage: 813 MG PER MONTH
     Route: 042
     Dates: start: 20131212, end: 20140227
  14. FUROSEMIDE. [Concomitant]
     Active Substance: FUROSEMIDE
     Dosage: UNK UKN, UNK
     Dates: start: 20140310
  15. METOPROLOL [Concomitant]
     Active Substance: METOPROLOL
     Dosage: UNK UKN, UNK
  16. OMEPRAZOLE. [Concomitant]
     Active Substance: OMEPRAZOLE
     Dosage: UNK UKN, UNK
  17. FINASTERIDE. [Concomitant]
     Active Substance: FINASTERIDE
     Dosage: UNK UKN, UNK
  18. PREDNISONE SANDOZ [Suspect]
     Active Substance: PREDNISONE
     Dosage: UNK UKN, UNK
     Route: 048
     Dates: start: 20131212, end: 20140424

REACTIONS (9)
  - Post transplant lymphoproliferative disorder [Unknown]
  - Diffuse large B-cell lymphoma [Unknown]
  - Retroperitoneal lymphadenopathy [Unknown]
  - Fatigue [Unknown]
  - Pyrexia [Unknown]
  - BK virus infection [Unknown]
  - Epstein-Barr virus infection [Unknown]
  - Kidney transplant rejection [Unknown]
  - Renal pain [Unknown]

NARRATIVE: CASE EVENT DATE: 20140217
